FAERS Safety Report 25218826 (Version 2)
Quarter: 2025Q2

REPORT INFORMATION
  Report Type: Report from Study
  Country: US (occurrence: US)
  Receive Date: 20250421
  Receipt Date: 20250514
  Transmission Date: 20250717
  Serious: Yes (Hospitalization, Other)
  Sender: ALEXION PHARMACEUTICALS
  Company Number: US-AstraZeneca-CH-00849048A

PATIENT
  Age: 52 Year

DRUGS (1)
  1. STRENSIQ [Suspect]
     Active Substance: ASFOTASE ALFA
     Route: 065

REACTIONS (9)
  - Loss of consciousness [Unknown]
  - Craniofacial fracture [Unknown]
  - Fall [Unknown]
  - Tooth loss [Unknown]
  - Calcinosis [Unknown]
  - Musculoskeletal discomfort [Not Recovered/Not Resolved]
  - Spinal disorder [Not Recovered/Not Resolved]
  - Balance disorder [Unknown]
  - Dizziness [Unknown]
